FAERS Safety Report 15195910 (Version 3)
Quarter: 2019Q1

REPORT INFORMATION
  Report Type: Spontaneous
  Country: US (occurrence: US)
  Receive Date: 20180725
  Receipt Date: 20190116
  Transmission Date: 20190417
  Serious: No
  Sender: FDA-Public Use
  Company Number: US-PFIZER INC-2018297172

PATIENT
  Age: 68 Year
  Sex: Female
  Weight: 63 kg

DRUGS (3)
  1. TYLENOL [Concomitant]
     Active Substance: ACETAMINOPHEN
     Dosage: 500 MG, 1X/DAY
     Route: 048
  2. VISTARIL [Suspect]
     Active Substance: HYDROXYZINE PAMOATE
     Indication: SLEEP DISORDER
  3. VISTARIL [Suspect]
     Active Substance: HYDROXYZINE PAMOATE
     Indication: ANTIALLERGIC THERAPY
     Dosage: 50 MG, 1X/DAY, AT BEDTIME
     Route: 048
     Dates: start: 1998

REACTIONS (6)
  - Product dose omission [Unknown]
  - Chest pain [Unknown]
  - Insomnia [Unknown]
  - Expired product administered [Unknown]
  - Secretion discharge [Unknown]
  - Head discomfort [Unknown]
